FAERS Safety Report 11175960 (Version 4)
Quarter: 2017Q1

REPORT INFORMATION
  Report Type: Report from Study
  Country: US (occurrence: US)
  Receive Date: 20150609
  Receipt Date: 20170324
  Transmission Date: 20170428
  Serious: Yes (Hospitalization)
  Sender: FDA-Public Use
  Company Number: US-ACTELION-A-US2015-118839

PATIENT
  Age: 38 Year
  Sex: Female
  Weight: 83 kg

DRUGS (10)
  1. NORVASC [Concomitant]
     Active Substance: AMLODIPINE BESYLATE
  2. ADVAIR HFA [Concomitant]
     Active Substance: FLUTICASONE PROPIONATE\SALMETEROL XINAFOATE
  3. MOTRIN [Concomitant]
     Active Substance: IBUPROFEN
  4. ZANTAC [Concomitant]
     Active Substance: RANITIDINE HYDROCHLORIDE
  5. LETAIRIS [Concomitant]
     Active Substance: AMBRISENTAN
     Dosage: 10 MG, QD
  6. POTASSIUM [Concomitant]
     Active Substance: POTASSIUM
  7. SILDENAFIL. [Concomitant]
     Active Substance: SILDENAFIL
     Dosage: 20 MG, TID
  8. SINGULAIR [Concomitant]
     Active Substance: MONTELUKAST SODIUM
  9. QVAR [Concomitant]
     Active Substance: BECLOMETHASONE DIPROPIONATE
  10. VELETRI [Suspect]
     Active Substance: EPOPROSTENOL
     Indication: PULMONARY ARTERIAL HYPERTENSION
     Dosage: 4 NG/KG, PER MIN
     Route: 042
     Dates: start: 20130420

REACTIONS (5)
  - Upper respiratory tract infection [Recovering/Resolving]
  - Asthma [Unknown]
  - Dyspnoea [Recovering/Resolving]
  - Hypoxia [Unknown]
  - Pneumonia [Recovering/Resolving]

NARRATIVE: CASE EVENT DATE: 20151026
